FAERS Safety Report 19642346 (Version 1)
Quarter: 2021Q3

REPORT INFORMATION
  Report Type: Spontaneous
  Country: US (occurrence: US)
  Receive Date: 20210730
  Receipt Date: 20210730
  Transmission Date: 20211014
  Serious: No
  Sender: FDA-Public Use
  Company Number: US-SA-2021SA250031

PATIENT
  Sex: Female

DRUGS (1)
  1. DUPIXENT [Suspect]
     Active Substance: DUPILUMAB
     Dosage: 1 DF
     Dates: start: 202107

REACTIONS (5)
  - Oedema peripheral [Unknown]
  - Muscular weakness [Unknown]
  - Inflammation [Unknown]
  - Injection site reaction [Unknown]
  - Headache [Unknown]

NARRATIVE: CASE EVENT DATE: 202107
